FAERS Safety Report 5670294-3 (Version None)
Quarter: 2008Q1

REPORT INFORMATION
  Report Type: 
  Country: None (occurrence: None)
  Receive Date: 20080314
  Receipt Date: 20080314
  Transmission Date: 20080703
  Serious: No
  Sender: FDA-Public Use
  Company Number: None

PATIENT
  Age: 50 Year
  Sex: Female
  Weight: 71.2147 kg

DRUGS (1)
  1. LEVAQUIN [Suspect]
     Indication: SINUSITIS
     Dosage: 1 FOR10DAYS PO
     Route: 048
     Dates: start: 20080312, end: 20080313

REACTIONS (5)
  - ABNORMAL BEHAVIOUR [None]
  - FEELING JITTERY [None]
  - NIGHTMARE [None]
  - POOR QUALITY SLEEP [None]
  - RESTLESSNESS [None]
